FAERS Safety Report 9800882 (Version 2)
Quarter: 2014Q1

REPORT INFORMATION
  Report Type: Report from Study
  Country: US (occurrence: US)
  Receive Date: 20140107
  Receipt Date: 20140107
  Transmission Date: 20141002
  Serious: Yes (Other)
  Sender: FDA-Public Use
  Company Number: US-PFIZER INC-2013312874

PATIENT
  Age: 8 Year
  Sex: Male
  Weight: 30 kg

DRUGS (1)
  1. CRIZOTINIB [Suspect]
     Indication: ANAPLASTIC LARGE CELL LYMPHOMA T- AND NULL-CELL TYPES
     Dosage: 215 MG/M2/DOSE, BID, SCHEDULE: 220 MG TAKEN 2X/DAY
     Dates: start: 20110422, end: 20131215

REACTIONS (1)
  - Blood creatinine increased [Recovered/Resolved]
